FAERS Safety Report 16733056 (Version 3)
Quarter: 2019Q4

REPORT INFORMATION
  Report Type: Spontaneous
  Country: US (occurrence: US)
  Receive Date: 20190823
  Receipt Date: 20191125
  Transmission Date: 20200122
  Serious: Yes (Death, Hospitalization, Other)
  Sender: FDA-Public Use
  Company Number: US-EMD SERONO-9111921

PATIENT
  Sex: Male

DRUGS (2)
  1. REBIF [Suspect]
     Active Substance: INTERFERON BETA-1A
     Indication: MULTIPLE SCLEROSIS
     Route: 058
     Dates: start: 20150515
  2. VITAMIN D                          /00107901/ [Concomitant]
     Active Substance: ERGOCALCIFEROL
     Indication: PRODUCT USED FOR UNKNOWN INDICATION
     Dosage: VITAMIN D 1000 UNITS A DAY

REACTIONS (9)
  - Decubitus ulcer [Unknown]
  - Primary progressive multiple sclerosis [Fatal]
  - Blood pressure abnormal [Unknown]
  - Constipation [Unknown]
  - CSF myelin basic protein increased [Unknown]
  - Protein total increased [Unknown]
  - Weight decreased [Unknown]
  - Sleep disorder [Unknown]
  - Pneumonia aspiration [Recovered/Resolved]

NARRATIVE: CASE EVENT DATE: 2016
